FAERS Safety Report 4301917-9 (Version None)
Quarter: 2004Q1

REPORT INFORMATION
  Report Type: 
  Country: None (occurrence: None)
  Receive Date: 20040223
  Receipt Date: 20030423
  Transmission Date: 20041129
  Serious: Yes (Hospitalization, Other)
  Sender: FDA-Public Use
  Company Number: US-BRISTOL-MYERS SQUIBB COMPANY-12254348

PATIENT
  Age: 34 Year
  Sex: Female
  Weight: 71 kg

DRUGS (35)
  1. STADOL [Suspect]
     Indication: MIGRAINE
     Route: 030
     Dates: start: 19900101, end: 19980101
  2. STADOL [Suspect]
     Indication: PREMATURE LABOUR
     Route: 030
     Dates: start: 19900101, end: 19980101
  3. STADOL [Suspect]
     Indication: DRUG WITHDRAWAL SYNDROME
     Route: 030
     Dates: start: 19900101, end: 19980101
  4. NUBAIN [Concomitant]
     Indication: MIGRAINE
     Route: 030
     Dates: start: 19980421
  5. LORCET-HD [Concomitant]
     Indication: MIGRAINE
  6. DEMEROL [Concomitant]
     Indication: MIGRAINE
     Route: 030
     Dates: start: 19930307
  7. VICODIN [Concomitant]
     Indication: MIGRAINE
     Dates: start: 19930307
  8. ATIVAN [Concomitant]
     Indication: ANXIETY
     Dates: start: 19920309
  9. REGLAN [Concomitant]
     Dates: start: 19920309
  10. SECONAL [Concomitant]
     Indication: MIGRAINE
     Route: 030
     Dates: start: 19910627
  11. ELAVIL [Concomitant]
     Dates: start: 19911001
  12. FIORINAL #3 [Concomitant]
     Indication: MIGRAINE
     Dates: start: 19911001
  13. VALIUM [Concomitant]
     Indication: ANXIETY
     Dates: start: 19911001
  14. COMPAZINE [Concomitant]
     Indication: MIGRAINE
     Dates: start: 19911001
  15. COMPAZINE [Concomitant]
     Indication: NAUSEA
     Dates: start: 19911001
  16. TAGAMET [Concomitant]
     Dates: start: 19940413
  17. TYLENOL W/ CODEINE NO. 3 [Concomitant]
     Indication: MIGRAINE
  18. DRAMAMINE [Concomitant]
     Indication: NAUSEA
     Dates: start: 19901230
  19. DRAMAMINE [Concomitant]
     Indication: MIGRAINE
     Dates: start: 19901230
  20. PHENERGAN [Concomitant]
     Indication: NAUSEA
     Route: 030
     Dates: start: 19980421
  21. PHENERGAN [Concomitant]
     Indication: MIGRAINE
     Route: 030
     Dates: start: 19980421
  22. DILAUDID [Concomitant]
     Indication: MIGRAINE
     Dates: start: 19930307
  23. XANAX [Concomitant]
     Indication: ANXIETY
  24. LORTAB [Concomitant]
     Indication: MIGRAINE
     Dates: start: 19980421
  25. MEPERGAN [Concomitant]
     Indication: MIGRAINE
     Route: 030
     Dates: start: 19901101
  26. LIBRAX [Concomitant]
     Dates: start: 19980601
  27. LIMBITROL DS [Concomitant]
     Dates: start: 19980601
  28. PREMARIN [Concomitant]
     Indication: ARTIFICIAL MENOPAUSE
     Dates: start: 19910101
  29. PRILOSEC [Concomitant]
     Dates: start: 20010801
  30. FLAGYL [Concomitant]
     Dates: start: 20010801
  31. PREVACID [Concomitant]
  32. TYLOX [Concomitant]
     Dates: start: 20001228
  33. BRETHINE [Concomitant]
     Indication: PREMATURE LABOUR
     Dates: start: 19910101
  34. DEPO-ESTRADIOL [Concomitant]
     Dates: start: 19930101
  35. METHADONE HCL [Concomitant]
     Indication: DRUG DEPENDENCE
     Dates: start: 19911024

REACTIONS (13)
  - CHEST PAIN [None]
  - COMPLICATIONS OF MATERNAL EXPOSURE TO THERAPEUTIC DRUGS [None]
  - DEPENDENCE [None]
  - DRUG WITHDRAWAL SYNDROME [None]
  - DYSPNOEA [None]
  - HEADACHE [None]
  - HEART RATE INCREASED [None]
  - NAUSEA [None]
  - PALPITATIONS [None]
  - PREGNANCY [None]
  - PREMATURE LABOUR [None]
  - UTERINE CONTRACTIONS ABNORMAL [None]
  - VOMITING [None]
